FAERS Safety Report 8562967-X (Version None)
Quarter: 2012Q3

REPORT INFORMATION
  Report Type: 
  Country: None (occurrence: None)
  Receive Date: 20120802
  Receipt Date: 20120720
  Transmission Date: 20120928
  Serious: No
  Sender: FDA-Public Use
  Company Number: US-AMGEN-USASP2012045377

PATIENT
  Age: 52 Year
  Sex: Female

DRUGS (1)
  1. ENBREL [Suspect]
     Indication: PSORIASIS
     Dosage: 50 MG, 2 TIMES/WK
     Dates: start: 20120427

REACTIONS (6)
  - DEHYDRATION [None]
  - MALAISE [None]
  - STRESS [None]
  - COUGH [None]
  - PSORIASIS [None]
  - DIARRHOEA [None]
